FAERS Safety Report 6686532-4 (Version None)
Quarter: 2010Q2

REPORT INFORMATION
  Report Type: 
  Country: None (occurrence: None)
  Receive Date: 20100419
  Receipt Date: 20100412
  Transmission Date: 20101027
  Serious: Yes (Hospitalization)
  Sender: FDA-Public Use
  Company Number: DE-ROCHE-697035

PATIENT
  Age: 32 Year
  Sex: Male
  Weight: 55 kg

DRUGS (3)
  1. ROACTEMRA [Suspect]
     Route: 042
     Dates: start: 20090301
  2. AZATHIOPRIN [Suspect]
     Indication: DRUG USE FOR UNKNOWN INDICATION
     Route: 048
     Dates: start: 19970401
  3. PREDNISONE [Suspect]
     Indication: DRUG USE FOR UNKNOWN INDICATION
     Route: 048
     Dates: start: 19940501

REACTIONS (1)
  - BURSITIS [None]
